FAERS Safety Report 20474638 (Version 2)
Quarter: 2022Q3

REPORT INFORMATION
  Report Type: Spontaneous
  Country: US (occurrence: US)
  Receive Date: 20220215
  Receipt Date: 20220903
  Transmission Date: 20221027
  Serious: Yes (Hospitalization, Other)
  Sender: FDA-Public Use
  Company Number: US-MLMSERVICE-20220202-3347352-1

PATIENT
  Age: 71 Year
  Sex: Female

DRUGS (6)
  1. LIDOCAINE [Suspect]
     Active Substance: LIDOCAINE
     Indication: Spinal anaesthesia
     Dosage: 1.5 ML L2-L4 MEDIAL BRANCH BLOCKS (VERTEBRAL LEVEL L3-L5), INJECTED AT EACH LEVEL AT THE JUNCTION OF
     Route: 008
  2. HYDROXYCHLOROQUINE [Suspect]
     Active Substance: HYDROXYCHLOROQUINE
     Indication: Rheumatoid arthritis
     Dosage: 200 MG, QD
     Route: 048
  3. PREDNISONE [Suspect]
     Active Substance: PREDNISONE
     Indication: Rheumatoid arthritis
     Dosage: 20 MG, QD
     Route: 048
  4. ACETAMINOPHEN\OXYCODONE HYDROCHLORIDE [Concomitant]
     Active Substance: ACETAMINOPHEN\OXYCODONE HYDROCHLORIDE
     Indication: Back pain
     Dosage: 1 DF, BID
  5. ACETAMINOPHEN\OXYCODONE HYDROCHLORIDE [Concomitant]
     Active Substance: ACETAMINOPHEN\OXYCODONE HYDROCHLORIDE
     Dosage: OCCASIONAL (5/325 MG TWO OR THREE TIMES A WEEK )
  6. CHLORAPREP [Concomitant]
     Active Substance: CHLORHEXIDINE GLUCONATE\ISOPROPYL ALCOHOL
     Indication: Sterilisation

REACTIONS (5)
  - Lumbar spinal stenosis [Recovered/Resolved]
  - Back pain [Recovered/Resolved]
  - Extradural abscess [Recovered/Resolved]
  - Gait disturbance [Recovered/Resolved]
  - Tenderness [Recovered/Resolved]
